FAERS Safety Report 12354812 (Version 1)
Quarter: 2016Q2

REPORT INFORMATION
  Report Type: Spontaneous
  Country: AR (occurrence: AR)
  Receive Date: 20160511
  Receipt Date: 20160511
  Transmission Date: 20160815
  Serious: Yes (Other)
  Sender: FDA-Public Use
  Company Number: AR-AMGEN-ARGSP2015123385

PATIENT
  Age: 66 Year
  Sex: Male

DRUGS (1)
  1. ENBREL [Suspect]
     Active Substance: ETANERCEPT
     Indication: RHEUMATOID ARTHRITIS
     Dosage: 50 MG, QWK
     Route: 065
     Dates: start: 20121226

REACTIONS (4)
  - Neck pain [Not Recovered/Not Resolved]
  - Tendon rupture [Recovering/Resolving]
  - Musculoskeletal pain [Not Recovered/Not Resolved]
  - Arthritis infective [Recovering/Resolving]

NARRATIVE: CASE EVENT DATE: 201507
